FAERS Safety Report 16170180 (Version 1)
Quarter: 2019Q2

REPORT INFORMATION
  Report Type: Spontaneous
  Country: US (occurrence: US)
  Receive Date: 20190408
  Receipt Date: 20190408
  Transmission Date: 20190711
  Serious: Yes (Hospitalization)
  Sender: FDA-Public Use
  Company Number: US-NOVAST LABORATORIES, LTD-US-2019NOV000198

PATIENT
  Age: 89 Year
  Sex: Female

DRUGS (6)
  1. MEMANTINE. [Concomitant]
     Active Substance: MEMANTINE
     Indication: DEPRESSION
  2. QUETIAPINE FUMARATE. [Suspect]
     Active Substance: QUETIAPINE FUMARATE
     Indication: DEPRESSION
  3. DONEPEZIL. [Concomitant]
     Active Substance: DONEPEZIL
     Indication: DEPRESSION
  4. DONEPEZIL. [Concomitant]
     Active Substance: DONEPEZIL
     Indication: DEMENTIA
     Dosage: UNK
     Route: 065
  5. MEMANTINE. [Concomitant]
     Active Substance: MEMANTINE
     Indication: DEMENTIA
     Dosage: UNK
     Route: 065
  6. QUETIAPINE FUMARATE. [Suspect]
     Active Substance: QUETIAPINE FUMARATE
     Indication: DEMENTIA
     Dosage: UNK
     Route: 065

REACTIONS (2)
  - Urinary retention [Recovered/Resolved]
  - Delirium [Recovered/Resolved]
